FAERS Safety Report 7014014-9 (Version None)
Quarter: 2010Q3

REPORT INFORMATION
  Report Type: 
  Country: None (occurrence: None)
  Receive Date: 20100927
  Receipt Date: 20100917
  Transmission Date: 20110219
  Serious: Yes (Hospitalization)
  Sender: FDA-Public Use
  Company Number: US-BIOGENIDEC-2010BI025373

PATIENT
  Age: 55 Year
  Sex: Male

DRUGS (3)
  1. TYSABRI [Suspect]
     Indication: CROHN'S DISEASE
     Route: 042
     Dates: start: 20081212, end: 20100604
  2. TYSABRI [Suspect]
     Route: 042
     Dates: start: 20100908
  3. CORTICOSTEROIDS [Concomitant]
     Indication: ADRENAL INSUFFICIENCY

REACTIONS (5)
  - ADRENAL INSUFFICIENCY [None]
  - HAEMATOMA INFECTION [None]
  - PULMONARY EMBOLISM [None]
  - SMALL INTESTINAL OBSTRUCTION [None]
  - STREPTOCOCCAL INFECTION [None]
